FAERS Safety Report 24267434 (Version 2)
Quarter: 2024Q3

REPORT INFORMATION
  Report Type: Report from Study
  Country: US (occurrence: US)
  Receive Date: 20240830
  Receipt Date: 20240927
  Transmission Date: 20241017
  Serious: Yes (Hospitalization, Other)
  Sender: ACADIA PHARMACEUTICALS
  Company Number: US-ACADIA PHARMACEUTICALS INC.-ACA-2024-PIM-004601

PATIENT
  Age: 76 Year
  Sex: Male

DRUGS (2)
  1. NUPLAZID [Suspect]
     Active Substance: PIMAVANSERIN TARTRATE
     Indication: Parkinson^s disease psychosis
     Dosage: 34 MILLIGRAM, QD
     Route: 048
  2. NUPLAZID [Suspect]
     Active Substance: PIMAVANSERIN TARTRATE
     Dosage: 34 MILLIGRAM, QD
     Route: 048

REACTIONS (12)
  - Pneumothorax [Not Recovered/Not Resolved]
  - Rib fracture [Not Recovered/Not Resolved]
  - Aspiration [Not Recovered/Not Resolved]
  - Fall [Unknown]
  - Dysphagia [Not Recovered/Not Resolved]
  - Gastrostomy [Not Recovered/Not Resolved]
  - Urinary tract infection [Not Recovered/Not Resolved]
  - General physical health deterioration [Not Recovered/Not Resolved]
  - Delusion [Not Recovered/Not Resolved]
  - Memory impairment [Not Recovered/Not Resolved]
  - Hallucination [Not Recovered/Not Resolved]
  - Aggression [Not Recovered/Not Resolved]

NARRATIVE: CASE EVENT DATE: 20240701
